FAERS Safety Report 7190264-6 (Version None)
Quarter: 2010Q4

REPORT INFORMATION
  Report Type: 
  Country: None (occurrence: None)
  Receive Date: 20101223
  Receipt Date: 20101210
  Transmission Date: 20110411
  Serious: Yes (Other)
  Sender: FDA-Public Use
  Company Number: PHHY2010ES84345

PATIENT
  Age: 35 Year
  Sex: Female

DRUGS (5)
  1. TEGRETOL [Suspect]
     Indication: AFFECTIVE DISORDER
     Dosage: 400 MG, QD
     Route: 048
  2. BUDESONIDE [Concomitant]
     Dosage: UNK
  3. ALAPRYL [Concomitant]
     Dosage: UNK
  4. EBASTINE [Concomitant]
  5. SEROQUEL [Concomitant]
     Dosage: UNK

REACTIONS (3)
  - PAROTID GLAND INFLAMMATION [None]
  - PSEUDOLYMPHOMA [None]
  - RASH MORBILLIFORM [None]
